FAERS Safety Report 9950591 (Version 1)
Quarter: 2014Q1

REPORT INFORMATION
  Report Type: Report from Study
  Country: US (occurrence: US)
  Receive Date: 20140304
  Receipt Date: 20140304
  Transmission Date: 20141002
  Serious: No
  Sender: FDA-Public Use
  Company Number: US-ABBVIE-13P-163-1066012-00

PATIENT
  Age: 63 Year
  Sex: Female
  Weight: 131.21 kg

DRUGS (9)
  1. HUMIRA [Suspect]
     Indication: RHEUMATOID ARTHRITIS
     Dates: start: 2002, end: 201210
  2. HUMIRA [Suspect]
     Dates: start: 201301
  3. TOPROL [Concomitant]
     Indication: HYPERTENSION
  4. AVAPRO [Concomitant]
     Indication: HYPERTENSION
  5. MORPHINE [Concomitant]
     Indication: PAIN
  6. INSULIN [Concomitant]
     Indication: DIABETES MELLITUS
  7. METHOTREXATE [Concomitant]
     Indication: RHEUMATOID ARTHRITIS
  8. NEURONTIN [Concomitant]
     Indication: DIABETIC NEUROPATHY
  9. CYMBALTA [Concomitant]
     Indication: PAIN

REACTIONS (2)
  - Arthralgia [Recovered/Resolved]
  - Injection site pain [Recovered/Resolved]
